FAERS Safety Report 9917228 (Version 1)
Quarter: 2014Q1

REPORT INFORMATION
  Report Type: Spontaneous
  Country: NL (occurrence: NL)
  Receive Date: 20140221
  Receipt Date: 20140221
  Transmission Date: 20141002
  Serious: Yes (Other)
  Sender: FDA-Public Use
  Company Number: NL-WATSON-2014-02819

PATIENT
  Age: 11 Year
  Sex: Male
  Weight: 31 kg

DRUGS (1)
  1. METRONIDAZOLE [Suspect]
     Indication: AMOEBIASIS
     Dosage: 250 MG, TID - 3 KEER PER DAG 1.5 STUK(S)
     Route: 048
     Dates: start: 20131231

REACTIONS (4)
  - Guillain-Barre syndrome [Recovering/Resolving]
  - Radiculitis [Recovering/Resolving]
  - Dizziness [Recovering/Resolving]
  - Headache [Recovering/Resolving]
